FAERS Safety Report 21102402 (Version 1)
Quarter: 2022Q3

REPORT INFORMATION
  Report Type: Spontaneous
  Country: FR (occurrence: FR)
  Receive Date: 20220719
  Receipt Date: 20220719
  Transmission Date: 20221027
  Serious: Yes (Death)
  Sender: FDA-Public Use
  Company Number: None

PATIENT
  Age: 78 Year
  Sex: Male
  Weight: 58 kg

DRUGS (11)
  1. VENLAFAXINE [Interacting]
     Active Substance: VENLAFAXINE HYDROCHLORIDE
     Indication: Mixed anxiety and depressive disorder
     Route: 048
     Dates: start: 20210107, end: 20210108
  2. CLOPIDOGREL [Interacting]
     Active Substance: CLOPIDOGREL BISULFATE
     Indication: Cardiovascular event prophylaxis
     Route: 048
     Dates: end: 20210108
  3. PAROXETINE [Interacting]
     Active Substance: PAROXETINE
     Indication: Mixed anxiety and depressive disorder
     Route: 048
     Dates: start: 20201216, end: 20210106
  4. ACEBUTOLOL HYDROCHLORIDE [Concomitant]
     Active Substance: ACEBUTOLOL HYDROCHLORIDE
     Indication: Product used for unknown indication
     Route: 048
     Dates: end: 20210108
  5. NAABAK [Concomitant]
     Indication: Product used for unknown indication
     Route: 047
     Dates: end: 20210108
  6. DIAZEPAM [Concomitant]
     Active Substance: DIAZEPAM
     Indication: Product used for unknown indication
     Route: 048
     Dates: start: 20210107, end: 20210108
  7. PANTOPRAZOLE [Concomitant]
     Active Substance: PANTOPRAZOLE
     Indication: Product used for unknown indication
     Route: 048
     Dates: start: 20210107, end: 20210108
  8. ATORVASTATIN [Concomitant]
     Active Substance: ATORVASTATIN
     Indication: Product used for unknown indication
     Route: 048
     Dates: end: 20210108
  9. LERCAPRESS [Concomitant]
     Indication: Product used for unknown indication
     Dosage: LERCAPRESS 20 MG/10 MG, FILM-COATED TABLET
     Route: 048
     Dates: end: 20210108
  10. NASONEX [Concomitant]
     Active Substance: MOMETASONE FUROATE
     Indication: Product used for unknown indication
     Dosage: NASONEX 50 MICROGRAMS/DOSE NASAL SPRAY SUSPENSION
     Route: 045
     Dates: end: 20210108
  11. CREON [Concomitant]
     Active Substance: PANCRELIPASE AMYLASE\PANCRELIPASE LIPASE\PANCRELIPASE PROTEASE
     Indication: Product used for unknown indication
     Route: 048
     Dates: end: 20210108

REACTIONS (2)
  - Drug interaction [Fatal]
  - Haematemesis [Fatal]

NARRATIVE: CASE EVENT DATE: 20210109
